FAERS Safety Report 6811199-1 (Version None)
Quarter: 2010Q2

REPORT INFORMATION
  Report Type: 
  Country: None (occurrence: None)
  Receive Date: 20100629
  Receipt Date: 20100629
  Transmission Date: 20101027
  Serious: No
  Sender: FDA-Public Use
  Company Number: None

PATIENT

DRUGS (1)
  1. BACTRIM [Suspect]

REACTIONS (24)
  - ABASIA [None]
  - ALOPECIA [None]
  - APHASIA [None]
  - APTYALISM [None]
  - BURNING SENSATION [None]
  - CHAPPED LIPS [None]
  - DRUG HYPERSENSITIVITY [None]
  - FOOD ALLERGY [None]
  - HAIR DISORDER [None]
  - LACRIMATION DECREASED [None]
  - LIP EXFOLIATION [None]
  - LIP HAEMORRHAGE [None]
  - MULTIPLE INJURIES [None]
  - NAIL HYPERTROPHY [None]
  - OESOPHAGEAL DISORDER [None]
  - ONYCHOCLASIS [None]
  - ONYCHOLYSIS [None]
  - PRECANCEROUS SKIN LESION [None]
  - RASH [None]
  - SCAR [None]
  - SKIN HYPERTROPHY [None]
  - STEVENS-JOHNSON SYNDROME [None]
  - TRICHORRHEXIS [None]
  - VISUAL ACUITY TESTS ABNORMAL [None]
